FAERS Safety Report 7215329-1 (Version None)
Quarter: 2011Q1

REPORT INFORMATION
  Report Type: 
  Country: None (occurrence: None)
  Receive Date: 20110107
  Receipt Date: 20110103
  Transmission Date: 20110831
  Serious: Yes (Death)
  Sender: FDA-Public Use
  Company Number: US-B.I. PHARMACEUTICALS,INC./RIDGEFIELD-2011-DE-00096BY

PATIENT
  Age: 42 Year
  Sex: Female

DRUGS (6)
  1. ACETAMINOPHEN W/HYDROCODONE [Suspect]
     Route: 048
  2. TELMISARTAN/HYDROCHLOROTHIAZIDE [Suspect]
     Route: 048
  3. DULOXETINE [Suspect]
     Route: 048
  4. MONTELUKAST [Suspect]
     Route: 048
  5. NIFEDIPINE [Suspect]
     Route: 048
  6. ACETAMINOPHEN W/HYDROCODONE [Suspect]
     Route: 048

REACTIONS (3)
  - COMPLETED SUICIDE [None]
  - TOXICITY TO VARIOUS AGENTS [None]
  - INTENTIONAL DRUG MISUSE [None]
